FAERS Safety Report 13774894 (Version 2)
Quarter: 2017Q3

REPORT INFORMATION
  Report Type: Spontaneous
  Country: FR (occurrence: FR)
  Receive Date: 20170720
  Receipt Date: 20170822
  Transmission Date: 20171127
  Serious: Yes (Life-Threatening, Other)
  Sender: FDA-Public Use
  Company Number: FR-TEVA-788036ROM

PATIENT
  Age: 66 Year
  Sex: Male
  Weight: 62 kg

DRUGS (10)
  1. PRIMPERAN [Concomitant]
     Active Substance: METOCLOPRAMIDE HYDROCHLORIDE
     Indication: COLORECTAL CANCER
     Dosage: FIRST ADMINISTRATION
     Route: 042
     Dates: start: 20160713, end: 20160713
  2. ZOPHREN [Concomitant]
     Active Substance: ONDANSETRON
     Indication: COLORECTAL CANCER
     Dosage: FIRST ADMINISTRATION
     Route: 042
     Dates: start: 20160713, end: 20160713
  3. ZOPHREN [Concomitant]
     Active Substance: ONDANSETRON
     Dosage: DAY 15, FOURTH COURSE OF AVASTIN-FOLFOX CHEMOTHERAPY PROTOCOL
     Route: 042
     Dates: start: 20170710, end: 20170710
  4. OXALIPLATINE TEVA 5 MG/ML [Suspect]
     Active Substance: OXALIPLATIN
     Indication: COLORECTAL CANCER
     Dosage: FIRST ADMINISTRATION
     Route: 041
     Dates: start: 20160713, end: 20160713
  5. PRIMPERAN [Concomitant]
     Active Substance: METOCLOPRAMIDE HYDROCHLORIDE
     Dosage: DAY 15, FOURTH COURSE OF AVASTIN-FOLFOX CHEMOTHERAPY PROTOCOL
     Route: 042
     Dates: start: 20170710, end: 20170710
  6. ELVORINE [Concomitant]
     Active Substance: LEUCOVORIN CALCIUM
     Indication: COLORECTAL CANCER
     Dosage: FIRST ADMINISTRATION
     Route: 042
     Dates: start: 20160713, end: 20160713
  7. AVASTIN [Concomitant]
     Active Substance: BEVACIZUMAB
     Indication: COLORECTAL CANCER
     Dosage: FIRST ADMINISTRATION
     Route: 042
     Dates: start: 20160713, end: 20160713
  8. AVASTIN [Concomitant]
     Active Substance: BEVACIZUMAB
     Dosage: DAY 15, FOURTH COURSE OF AVASTIN-FOLFOX CHEMOTHERAPY PROTOCOL
     Route: 042
     Dates: start: 20170710, end: 20170710
  9. OXALIPLATINE TEVA 5 MG/ML [Suspect]
     Active Substance: OXALIPLATIN
     Dosage: DAY 15, FOURTH COURSE OF AVASTIN-FOLFOX CHEMOTHERAPY PROTOCOL
     Route: 041
     Dates: start: 20170710, end: 20170710
  10. ELVORINE [Concomitant]
     Active Substance: LEUCOVORIN CALCIUM
     Dosage: DAY 15, FOURTH COURSE OF AVASTIN-FOLFOX CHEMOTHERAPY PROTOCOL
     Route: 042
     Dates: start: 20170710, end: 20170710

REACTIONS (3)
  - Erythema [Recovered/Resolved]
  - Blood pressure decreased [Recovered/Resolved]
  - Hyperhidrosis [Recovered/Resolved]

NARRATIVE: CASE EVENT DATE: 20170710
